FAERS Safety Report 13561762 (Version 3)
Quarter: 2017Q2

REPORT INFORMATION
  Report Type: Spontaneous
  Country: US (occurrence: US)
  Receive Date: 20170518
  Receipt Date: 20170621
  Transmission Date: 20170830
  Serious: No
  Sender: FDA-Public Use
  Company Number: US-TEVA-765813ACC

PATIENT
  Sex: Female

DRUGS (12)
  1. COPAXONE [Suspect]
     Active Substance: GLATIRAMER ACETATE
     Indication: MULTIPLE SCLEROSIS
     Route: 058
     Dates: start: 20170314
  2. MULTI-VITAMIN [Concomitant]
     Active Substance: .ALPHA.-TOCOPHEROL ACETATE, DL-\ASCORBIC ACID\CYANOCOBALAMIN\FLUORIDE ION\FOLIC ACID\NIACIN\PYRIDOXINE\RIBOFLAVIN\THIAMINE\VITAMIN A\VITAMIN D
  3. PREDNISONE. [Concomitant]
     Active Substance: PREDNISONE
  4. XENAZINE [Suspect]
     Active Substance: TETRABENAZINE
     Indication: MULTIPLE SCLEROSIS
     Dosage: 225 MILLIGRAM DAILY;
     Route: 048
     Dates: start: 20161217
  5. VITAMIN C [Concomitant]
     Active Substance: ASCORBIC ACID
  6. VITAM [Concomitant]
  7. VITAMIN D3 [Concomitant]
     Active Substance: CHOLECALCIFEROL
  8. CITALOPRAM [Concomitant]
     Active Substance: CITALOPRAM HYDROBROMIDE
  9. VITAMIN E [Concomitant]
     Active Substance: .ALPHA.-TOCOPHEROL
  10. XANAX [Concomitant]
     Active Substance: ALPRAZOLAM
  11. ALBUTEIN [Concomitant]
     Active Substance: ALBUMIN HUMAN
  12. RISPERIDONE. [Concomitant]
     Active Substance: RISPERIDONE

REACTIONS (4)
  - Injection site pruritus [Not Recovered/Not Resolved]
  - Injection site erythema [Not Recovered/Not Resolved]
  - Fall [Not Recovered/Not Resolved]
  - Injection site rash [Not Recovered/Not Resolved]
